FAERS Safety Report 17828420 (Version 1)
Quarter: 2020Q2

REPORT INFORMATION
  Report Type: Spontaneous
  Country: US (occurrence: US)
  Receive Date: 20200526
  Receipt Date: 20200526
  Transmission Date: 20200714
  Serious: No
  Sender: FDA-Public Use
  Company Number: None

PATIENT
  Age: 37 Year
  Sex: Female
  Weight: 56.7 kg

DRUGS (1)
  1. TRIKAFTA [Suspect]
     Active Substance: ELEXACAFTOR\IVACAFTOR\TEZACAFTOR
     Indication: CYSTIC FIBROSIS
     Dosage: ?          OTHER DOSE:2TABSAM1TABPM;?
     Route: 048
     Dates: start: 20200504

REACTIONS (3)
  - Urinary incontinence [None]
  - Weight increased [None]
  - Sinus headache [None]

NARRATIVE: CASE EVENT DATE: 20200504
